FAERS Safety Report 9434450 (Version 2)
Quarter: 2013Q3

REPORT INFORMATION
  Report Type: Spontaneous
  Country: AT (occurrence: AT)
  Receive Date: 20130801
  Receipt Date: 20130821
  Transmission Date: 20140515
  Serious: Yes (Hospitalization, Other)
  Sender: FDA-Public Use
  Company Number: AT-JNJFOC-20130715758

PATIENT
  Age: 76 Year
  Sex: Female

DRUGS (5)
  1. XARELTO [Suspect]
     Indication: CEREBROVASCULAR ACCIDENT PROPHYLAXIS
     Route: 048
     Dates: start: 20130510, end: 20130516
  2. XARELTO [Suspect]
     Indication: ATRIAL FIBRILLATION
     Route: 048
     Dates: start: 20130510, end: 20130516
  3. CARVEDILOL [Concomitant]
     Indication: HYPERTONIA
     Route: 065
     Dates: start: 20110804
  4. CANDESARTAN [Concomitant]
     Indication: HYPERTONIA
     Route: 065
     Dates: start: 20130311
  5. PANTOLOC [Concomitant]
     Indication: GASTRITIS
     Route: 065
     Dates: start: 20130510, end: 20130527

REACTIONS (5)
  - Tachycardia [Recovered/Resolved]
  - Angina pectoris [Recovered/Resolved]
  - Pleural effusion [Recovered/Resolved]
  - Dyspnoea [Recovered/Resolved]
  - Chest pain [Recovered/Resolved]
